FAERS Safety Report 22090181 (Version 19)
Quarter: 2025Q2

REPORT INFORMATION
  Report Type: Report from Study
  Country: US (occurrence: US)
  Receive Date: 20230313
  Receipt Date: 20250401
  Transmission Date: 20250717
  Serious: Yes (Hospitalization, Other)
  Sender: TAKEDA
  Company Number: US-PAREXEL-2021-KAM-US003538

PATIENT
  Age: 60 Year
  Sex: Female
  Weight: 77 kg

DRUGS (33)
  1. GLASSIA [Suspect]
     Active Substance: .ALPHA.1-PROTEINASE INHIBITOR HUMAN
     Indication: Alpha-1 antitrypsin deficiency
     Dosage: 60 MILLIGRAM/KILOGRAM, 1/WEEK
     Dates: start: 20200916
  2. GLASSIA [Suspect]
     Active Substance: .ALPHA.1-PROTEINASE INHIBITOR HUMAN
     Dosage: 60 MILLIGRAM/KILOGRAM, 1/WEEK
     Dates: start: 20200918
  3. GLASSIA [Suspect]
     Active Substance: .ALPHA.1-PROTEINASE INHIBITOR HUMAN
     Dosage: 60 MILLIGRAM/KILOGRAM, 1/WEEK
     Dates: start: 20210317
  4. GLASSIA [Suspect]
     Active Substance: .ALPHA.1-PROTEINASE INHIBITOR HUMAN
     Dosage: 60 MILLIGRAM, 1/WEEK
  5. GLASSIA [Suspect]
     Active Substance: .ALPHA.1-PROTEINASE INHIBITOR HUMAN
     Dosage: 60 MILLIGRAM/KILOGRAM, 1/WEEK
  6. EPINEPHRINE [Concomitant]
     Active Substance: EPINEPHRINE
  7. ENULOSE [Concomitant]
     Active Substance: LACTULOSE
  8. MELATONIN [Concomitant]
     Active Substance: MELATONIN
  9. SODIUM CHLORIDE [Concomitant]
     Active Substance: SODIUM CHLORIDE
  10. HEPARIN [Concomitant]
     Active Substance: HEPARIN SODIUM
  11. ALBUTEROL SULFATE [Concomitant]
     Active Substance: ALBUTEROL SULFATE
  12. PANTOPRAZOLE SODIUM [Concomitant]
     Active Substance: PANTOPRAZOLE SODIUM
  13. BREZTRI [Concomitant]
     Active Substance: BUDESONIDE\FORMOTEROL\GLYCOPYRROLATE
  14. ZOFRAN [Concomitant]
     Active Substance: ONDANSETRON HYDROCHLORIDE
  15. PREMARIN [Concomitant]
     Active Substance: ESTROGENS, CONJUGATED
  16. POTASSIUM CHLORIDE [Concomitant]
     Active Substance: POTASSIUM CHLORIDE
  17. PROAIR HFA [Concomitant]
     Active Substance: ALBUTEROL SULFATE
  18. OXYGEN [Concomitant]
     Active Substance: OXYGEN
  19. DIAZEPAM [Concomitant]
     Active Substance: DIAZEPAM
  20. ASPIRIN [Concomitant]
     Active Substance: ASPIRIN
  21. Lmx [Concomitant]
  22. DIPHENHYDRAMINE HYDROCHLORIDE [Concomitant]
     Active Substance: DIPHENHYDRAMINE HYDROCHLORIDE
  23. WELLBUTRIN XL [Concomitant]
     Active Substance: BUPROPION HYDROCHLORIDE
  24. MAGNESIUM [Concomitant]
     Active Substance: MAGNESIUM
  25. TORSEMIDE [Concomitant]
     Active Substance: TORSEMIDE
  26. ATENOLOL [Concomitant]
     Active Substance: ATENOLOL
  27. OXYCODONE HYDROCHLORIDE [Concomitant]
     Active Substance: OXYCODONE HYDROCHLORIDE
  28. AZITHROMYCIN [Concomitant]
     Active Substance: AZITHROMYCIN
  29. ATORVASTATIN CALCIUM [Concomitant]
     Active Substance: ATORVASTATIN CALCIUM
  30. IPRATROPIUM BROMIDE [Concomitant]
     Active Substance: IPRATROPIUM BROMIDE
  31. STIOLTO RESPIMAT [Concomitant]
     Active Substance: OLODATEROL HYDROCHLORIDE\TIOTROPIUM BROMIDE MONOHYDRATE
  32. XTAMPZA ER [Concomitant]
     Active Substance: OXYCODONE
  33. HYDROCHLOROTHIAZIDE\OLMESARTAN MEDOXOMIL [Concomitant]
     Active Substance: HYDROCHLOROTHIAZIDE\OLMESARTAN MEDOXOMIL

REACTIONS (32)
  - Small intestinal obstruction [Unknown]
  - Pyelonephritis [Unknown]
  - Macular degeneration [Not Recovered/Not Resolved]
  - Pneumonia bacterial [Unknown]
  - Respiratory tract infection [Unknown]
  - Catheter site swelling [Unknown]
  - Fall [Unknown]
  - Contusion [Unknown]
  - Eye contusion [Unknown]
  - Influenza like illness [Unknown]
  - Pyrexia [Unknown]
  - Influenza [Unknown]
  - Illness [Unknown]
  - Pain in extremity [Unknown]
  - Pain [Unknown]
  - Productive cough [Unknown]
  - Arthralgia [Unknown]
  - Fungal skin infection [Unknown]
  - Gastrointestinal disorder [Not Recovered/Not Resolved]
  - Injury associated with device [Not Recovered/Not Resolved]
  - Device issue [Unknown]
  - Drug hypersensitivity [Unknown]
  - Product dose omission issue [Unknown]
  - Blood pressure increased [Unknown]
  - Wheezing [Unknown]
  - Staphylococcal infection [Unknown]
  - Abdominal pain [Unknown]
  - Malaise [Unknown]
  - Feeling abnormal [Unknown]
  - Rash [Unknown]
  - Fatigue [Unknown]
  - Upper respiratory tract infection [Unknown]

NARRATIVE: CASE EVENT DATE: 20220311
